FAERS Safety Report 12152073 (Version 1)
Quarter: 2016Q1

REPORT INFORMATION
  Report Type: Spontaneous
  Country: US (occurrence: US)
  Receive Date: 20160304
  Receipt Date: 20160304
  Transmission Date: 20160526
  Serious: No
  Sender: FDA-Public Use
  Company Number: US-AMGEN-USASP2015097955

PATIENT
  Age: 77 Year
  Sex: Male
  Weight: 96 kg

DRUGS (2)
  1. SENSIPAR [Suspect]
     Active Substance: CINACALCET HYDROCHLORIDE
     Indication: PRODUCT USED FOR UNKNOWN INDICATION
     Dosage: 30 MG, UNK
     Route: 048
  2. RENVELA [Concomitant]
     Active Substance: SEVELAMER CARBONATE
     Indication: BLOOD PHOSPHORUS INCREASED
     Dosage: UNK UNK, TID
     Route: 048
     Dates: start: 201405

REACTIONS (4)
  - Confusional state [Unknown]
  - Pain [Unknown]
  - Constipation [Unknown]
  - Hallucination [Recovered/Resolved]

NARRATIVE: CASE EVENT DATE: 201509
